FAERS Safety Report 16661098 (Version 7)
Quarter: 2020Q4

REPORT INFORMATION
  Report Type: Spontaneous
  Country: US (occurrence: US)
  Receive Date: 20190802
  Receipt Date: 20201104
  Transmission Date: 20210113
  Serious: No
  Sender: FDA-Public Use
  Company Number: US-PFIZER INC-2018036796

PATIENT
  Age: 58 Year
  Sex: Male
  Weight: 109 kg

DRUGS (23)
  1. FLUTICASONE PROPIONATE. [Concomitant]
     Active Substance: FLUTICASONE PROPIONATE
     Dosage: UNK, AS NEEDED (50 MCG/ACT; USE 2 SPRAYS IN EACH NOSTRIL, ONCE DAILY PRN)
     Route: 045
     Dates: start: 20190213
  2. BENZONATATE. [Concomitant]
     Active Substance: BENZONATATE
     Dosage: 200 MG, AS NEEDED (TAKE 1 CAPSULE 3 TIMES DAILY)
     Route: 048
     Dates: start: 20191216
  3. LYRICA [Suspect]
     Active Substance: PREGABALIN
     Indication: ROUTINE HEALTH MAINTENANCE
     Dosage: 450 MG, DAILY [TAKE 2 CAPSULES BY MOUTH IN THE AM, AND 1 CAPSULE AT BEDTIME]
     Route: 048
     Dates: start: 201201, end: 2012
  4. LYRICA [Suspect]
     Active Substance: PREGABALIN
     Indication: ARTHRALGIA
     Dosage: 450 MG, DAILY (2 CAPSULES IN THE AM, AND 1 CAPSULE AT BEDTIME)
     Route: 048
     Dates: start: 201207
  5. ATORVASTATIN CALCIUM. [Concomitant]
     Active Substance: ATORVASTATIN CALCIUM
     Dosage: 80 MG, DAILY
     Route: 048
  6. PRASUGREL HCL [Concomitant]
     Dosage: 10 MG, DAILY
     Route: 048
     Dates: start: 20181109
  7. ISOSORBIDE MONONITRATE. [Concomitant]
     Active Substance: ISOSORBIDE MONONITRATE
     Dosage: 30 MG, DAILY
     Route: 048
     Dates: start: 20181124
  8. IPRATROPIUM BROMIDE. [Concomitant]
     Active Substance: IPRATROPIUM BROMIDE
     Dosage: UNK, USE 2 SPAYS IN EACH NOSTRIL 2 TO 3  TIMES DAILY
     Route: 045
     Dates: start: 20190507
  9. CARVEDILOL. [Concomitant]
     Active Substance: CARVEDILOL
     Dosage: 1.5 DF, 2X/DAY (TAKE 1.5 TABLET EVERY TWELVE HOURS)
     Route: 048
     Dates: start: 20180928
  10. SENNA PLUS [Concomitant]
     Active Substance: DOCUSATE SODIUM\SENNOSIDES\SENNOSIDES A AND B
     Dosage: 1 DF, DAILY (DOCUSATE SODIUM 50 MG / SENNOSIDES 8.6 MG)
     Route: 048
     Dates: start: 20181001
  11. PRAZOSIN HCL [Concomitant]
     Active Substance: PRAZOSIN HYDROCHLORIDE
     Dosage: 4 MG, 1X/DAY (TAKE 2 CAPSULES BY MOUTH EVERY DAY AT BED TIME))
     Route: 048
     Dates: start: 20190220
  12. BUSPIRONE [Concomitant]
     Active Substance: BUSPIRONE HYDROCHLORIDE
     Dosage: 10 MG, 2X/DAY (2 TABLETS BY MOUTH TWICE A DAY)
     Route: 048
     Dates: start: 20190713
  13. LYRICA [Suspect]
     Active Substance: PREGABALIN
     Dosage: 450 MG, DAILY (2 CAPSULES IN THE AM, AND 1 CAPSULE AT BEDTIME)
     Route: 048
     Dates: start: 20190723
  14. TRAMADOL HCL [Concomitant]
     Active Substance: TRAMADOL HYDROCHLORIDE
     Dosage: 50 MG, AS NEEDED, TAKE 1 TABLET EVERY 8 HOURS
     Route: 048
     Dates: start: 20181004
  15. LAMOTRIGINE. [Concomitant]
     Active Substance: LAMOTRIGINE
     Dosage: 100 MG, DAILY
     Route: 048
     Dates: start: 20181223
  16. CLOTRIMAZOLE AND BETAMETHASONE [Concomitant]
     Active Substance: BETAMETHASONE\CLOTRIMAZOLE
     Dosage: UNK, 3X/DAY (APPLY SPARINGLY TO AFFECTED  AREA)
     Route: 061
     Dates: start: 20190124
  17. OXYCODONE HYDROCHLORIDE. [Concomitant]
     Active Substance: OXYCODONE HYDROCHLORIDE
     Indication: PAIN
     Dosage: 5 MG, AS NEEDED (TAKE 1 TABLET EVERY 4 TO 6 HOURS AS  NEEDED )
     Route: 048
     Dates: start: 20181003
  18. SLO-NIACIN [Concomitant]
     Active Substance: NIACIN
     Dosage: 1500 MG, 1X/DAY (TAKE 2 TABLET (750 MG DOSE) BY MOUTH AT BEDTIME)
     Route: 048
     Dates: start: 20190418
  19. LYRICA [Suspect]
     Active Substance: PREGABALIN
     Dosage: 150 MG, 1X/DAY (ONE CAPSULE) AT BEDTIME
     Route: 048
  20. NITROGLYCERIN. [Concomitant]
     Active Substance: NITROGLYCERIN
     Indication: CHEST PAIN
     Dosage: 0.4 MG, AS NEEDED (DISSOLVE 1 TABLET UNDER THE TONGUE)
     Route: 060
     Dates: start: 20190204
  21. CYCLOBENZAPRINE HCL [Concomitant]
     Active Substance: CYCLOBENZAPRINE HYDROCHLORIDE
     Dosage: 10 MG, 1X/DAY (AT BEDTIME)
     Route: 048
     Dates: start: 20181019
  22. DOXEPIN HCL [Concomitant]
     Active Substance: DOXEPIN HYDROCHLORIDE
     Dosage: 10 MG, 1X/DAY
     Route: 048
     Dates: start: 20190731
  23. ZETIA [Concomitant]
     Active Substance: EZETIMIBE
     Dosage: 10 MG, 1X/DAY (AT BEDTIME )
     Route: 048
     Dates: start: 20191223

REACTIONS (9)
  - Off label use [Unknown]
  - Pain [Unknown]
  - Vitamin D deficiency [Unknown]
  - Prescribed overdose [Unknown]
  - Product use in unapproved indication [Unknown]
  - Withdrawal syndrome [Unknown]
  - Diarrhoea [Unknown]
  - Feeling abnormal [Unknown]
  - Hyperhidrosis [Unknown]

NARRATIVE: CASE EVENT DATE: 201201
